FAERS Safety Report 7178325-9 (Version None)
Quarter: 2010Q4

REPORT INFORMATION
  Report Type: 
  Country: None (occurrence: None)
  Receive Date: 20101220
  Receipt Date: 20101206
  Transmission Date: 20110411
  Serious: Yes (Other)
  Sender: FDA-Public Use
  Company Number: HR-ELI_LILLY_AND_COMPANY-HR201012002125

PATIENT
  Sex: Female
  Weight: 92 kg

DRUGS (10)
  1. ZYPREXA [Suspect]
     Indication: PSYCHOTIC DISORDER
     Dosage: 5 MG, DAILY (1/D)
     Route: 048
     Dates: start: 20100308, end: 20100819
  2. ZYPREXA [Suspect]
     Dosage: 1 D/F, UNK
  3. VELAFAX [Concomitant]
     Indication: PSYCHOTIC DISORDER
     Dosage: 150 MG, DAILY (1/D)
     Route: 048
     Dates: start: 20100715, end: 20101103
  4. VELAFAX [Concomitant]
     Dosage: UNK, UNK
  5. ALPRAZOLAM [Concomitant]
     Indication: PSYCHOTIC DISORDER
     Dosage: 1 MG, DAILY (1/D)
     Route: 048
     Dates: start: 20100608, end: 20100917
  6. FEVARIN [Concomitant]
     Indication: PSYCHOTIC DISORDER
     Dosage: 75 MG, DAILY (1/D)
     Route: 048
     Dates: start: 20100521
  7. LORSILAN [Concomitant]
     Dosage: 2.5 MG, UNK
     Dates: start: 20100918
  8. ORMIDOL [Concomitant]
     Dosage: 25 MG, UNK
  9. PRAZINE [Concomitant]
  10. NORMABEL [Concomitant]

REACTIONS (6)
  - BRADYKINESIA [None]
  - DEPRESSION [None]
  - DRY MOUTH [None]
  - DYSPHAGIA [None]
  - HYPERSOMNIA [None]
  - SUPRAVENTRICULAR TACHYCARDIA [None]
